FAERS Safety Report 8308754-9 (Version None)
Quarter: 2012Q2

REPORT INFORMATION
  Report Type: 
  Country: None (occurrence: None)
  Receive Date: 20120424
  Receipt Date: 20120419
  Transmission Date: 20120825
  Serious: Yes (Disabling)
  Sender: FDA-Public Use
  Company Number: US-PFIZER INC-2012097988

PATIENT
  Sex: Female
  Weight: 68.027 kg

DRUGS (8)
  1. LYRICA [Suspect]
     Indication: OSTEOARTHRITIS
  2. PLAQUENIL [Concomitant]
     Dosage: UNK
  3. MELOXICAM [Concomitant]
     Indication: FIBROMYALGIA
     Dosage: UNK
  4. ATENOLOL [Concomitant]
     Indication: HYPERTENSION
     Dosage: UNK
  5. MELOXICAM [Concomitant]
     Indication: OSTEOARTHRITIS
  6. LYRICA [Suspect]
     Indication: FIBROMYALGIA
     Dosage: 75 MG, 2X/DAY
     Route: 048
     Dates: end: 20111101
  7. HYDROCHLOROTHIAZIDE [Concomitant]
     Indication: HYPERTENSION
     Dosage: UNK
  8. SIMVASTATIN [Concomitant]
     Indication: HYPERTENSION
     Dosage: UNK

REACTIONS (3)
  - ACTIVITIES OF DAILY LIVING IMPAIRED [None]
  - OSTEOARTHRITIS [None]
  - FIBROMYALGIA [None]
